FAERS Safety Report 14896568 (Version 1)
Quarter: 2018Q2

REPORT INFORMATION
  Report Type: Spontaneous
  Country: GB (occurrence: GB)
  Receive Date: 20180515
  Receipt Date: 20180515
  Transmission Date: 20180711
  Serious: Yes (Other)
  Sender: FDA-Public Use
  Company Number: GB-ASTRAZENECA-2018SE61358

PATIENT
  Age: 67 Year
  Sex: Female
  Weight: 76 kg

DRUGS (13)
  1. METFORMIN [Concomitant]
     Active Substance: METFORMIN HYDROCHLORIDE
     Dates: start: 20071001, end: 20180417
  2. VAGIFEM [Concomitant]
     Active Substance: ESTRADIOL
     Dates: start: 20180319, end: 20180320
  3. LANSOPRAZOLE. [Concomitant]
     Active Substance: LANSOPRAZOLE
     Indication: DYSPEPSIA
     Dosage: 1.0DF UNKNOWN
     Dates: start: 20080502
  4. VENTOLIN [Concomitant]
     Active Substance: ALBUTEROL SULFATE
     Dosage: 2.0DF UNKNOWN
     Route: 055
     Dates: start: 20150615
  5. QUININE [Concomitant]
     Active Substance: QUININE
     Indication: MUSCLE SPASMS
     Dates: start: 20180417
  6. RAMIPRIL. [Concomitant]
     Active Substance: RAMIPRIL
     Dates: start: 20141217
  7. XIGDUO XR [Suspect]
     Active Substance: DAPAGLIFLOZIN PROPANEDIOL\METFORMIN HYDROCHLORIDE
     Route: 048
     Dates: start: 20180417
  8. SIMVASTATIN. [Concomitant]
     Active Substance: SIMVASTATIN
     Dates: start: 20160719
  9. OILATUM [Concomitant]
     Dosage: AS DIRECTED
     Dates: start: 20120103
  10. CETRABEN EMOLLIENT CREAM [Concomitant]
     Indication: DRY SKIN
     Dosage: USE LIBERALLY
     Dates: start: 20171020
  11. GLICLAZIDE [Concomitant]
     Active Substance: GLICLAZIDE
     Dates: start: 20130306
  12. CLENIL MODULITE [Concomitant]
     Active Substance: BECLOMETHASONE DIPROPIONATE
     Dosage: PUFFS, FOUR DOSAGE FORM DAILY
     Dates: start: 20080723
  13. BETAMETHASONE VALERATE. [Concomitant]
     Active Substance: BETAMETHASONE VALERATE
     Dosage: APPLY TWICE DAILY THINLY TO VULVAL REGION, TWO DOSAGE FORM DAILY
     Dates: start: 20180319, end: 20180326

REACTIONS (4)
  - Nausea [Recovering/Resolving]
  - Abdominal pain upper [Unknown]
  - Diarrhoea [Recovering/Resolving]
  - Dyspepsia [Recovering/Resolving]

NARRATIVE: CASE EVENT DATE: 20180423
